FAERS Safety Report 16345758 (Version 1)
Quarter: 2019Q2

REPORT INFORMATION
  Report Type: Spontaneous
  Country: IT (occurrence: IT)
  Receive Date: 20190523
  Receipt Date: 20190523
  Transmission Date: 20190711
  Serious: Yes (Hospitalization)
  Sender: FDA-Public Use
  Company Number: IT-TEVA-2019-IT-1052860

PATIENT
  Age: 77 Year
  Sex: Male

DRUGS (1)
  1. TICLOPIDINA DOROM 250 MG COMPRESSE RIVESTITE CON FILM [Suspect]
     Active Substance: TICLOPIDINE HYDROCHLORIDE
     Dosage: 250 MILLIGRAM DAILY;
     Route: 048
     Dates: start: 20161005, end: 20180925

REACTIONS (1)
  - Melaena [Recovered/Resolved]

NARRATIVE: CASE EVENT DATE: 20180925
